FAERS Safety Report 19819053 (Version 2)
Quarter: 2021Q3

REPORT INFORMATION
  Report Type: Spontaneous
  Country: AR (occurrence: AR)
  Receive Date: 20210913
  Receipt Date: 20210922
  Transmission Date: 20211014
  Serious: Yes (Other)
  Sender: FDA-Public Use
  Company Number: AR-AMGEN-ARGSP2021140267

PATIENT
  Age: 58 Year
  Sex: Female

DRUGS (1)
  1. ENBREL [Suspect]
     Active Substance: ETANERCEPT
     Indication: RHEUMATOID ARTHRITIS
     Dosage: 50 MG, WEEKLY
     Route: 065
     Dates: start: 20140308

REACTIONS (4)
  - Pain in extremity [Not Recovered/Not Resolved]
  - Stress [Not Recovered/Not Resolved]
  - Thyroid cancer [Not Recovered/Not Resolved]
  - Condition aggravated [Not Recovered/Not Resolved]
